FAERS Safety Report 4951094-6 (Version None)
Quarter: 2006Q1

REPORT INFORMATION
  Report Type: 
  Country: None (occurrence: None)
  Receive Date: 20060322
  Receipt Date: 20050909
  Transmission Date: 20060701
  Serious: Yes (Hospitalization, Disabling)
  Sender: FDA-Public Use
  Company Number: US-MERCK-0509USA01170

PATIENT
  Age: 55 Year
  Sex: Female
  Weight: 84 kg

DRUGS (2)
  1. TYLENOL (CAPLET) [Concomitant]
     Route: 065
  2. VIOXX [Suspect]
     Indication: RHEUMATOID ARTHRITIS
     Route: 048
     Dates: start: 20011227, end: 20041020

REACTIONS (2)
  - MYOCARDIAL INFARCTION [None]
  - NERVE COMPRESSION [None]
